FAERS Safety Report 11078124 (Version 1)
Quarter: 2015Q2

REPORT INFORMATION
  Report Type: Spontaneous
  Country: US (occurrence: None)
  Receive Date: 20150429
  Receipt Date: 20150429
  Transmission Date: 20150821
  Serious: Yes (Hospitalization)
  Sender: FDA-Public Use
  Company Number: None

PATIENT
  Age: 92 Year
  Sex: Male

DRUGS (13)
  1. XGEVA [Suspect]
     Active Substance: DENOSUMAB
     Route: 058
     Dates: start: 20131224
  2. ALODRAIN [Concomitant]
  3. ISOSORPIDE [Concomitant]
  4. SENTHROID [Concomitant]
  5. PLAVIX [Concomitant]
     Active Substance: CLOPIDOGREL BISULFATE
  6. INSULIN [Concomitant]
     Active Substance: INSULIN NOS
  7. TEA [Concomitant]
     Active Substance: TEA LEAF
  8. ASPIRIN. [Concomitant]
     Active Substance: ASPIRIN
  9. GONEVA [Concomitant]
  10. AVODART [Concomitant]
     Active Substance: DUTASTERIDE
  11. LISINOPRIL. [Concomitant]
     Active Substance: LISINOPRIL
  12. ZYTIGA [Suspect]
     Active Substance: ABIRATERONE ACETATE
     Route: 048
     Dates: start: 20130619
  13. ALLPURINOL [Concomitant]

REACTIONS (2)
  - Drug dose omission [None]
  - Myocardial infarction [None]

NARRATIVE: CASE EVENT DATE: 20150424
